FAERS Safety Report 7116791-5 (Version None)
Quarter: 2010Q4

REPORT INFORMATION
  Report Type: 
  Country: None (occurrence: None)
  Receive Date: 20101115
  Receipt Date: 20101103
  Transmission Date: 20110411
  Serious: Yes (Disabling)
  Sender: FDA-Public Use
  Company Number: 2010SP003068

PATIENT
  Sex: Male
  Weight: 77.1 kg

DRUGS (2)
  1. LUNESTA [Suspect]
     Indication: INSOMNIA
     Dosage: SEE IMAGE; ORAL
     Route: 048
  2. CYMBALTA [Concomitant]

REACTIONS (7)
  - ANXIETY [None]
  - DRUG EFFECT DECREASED [None]
  - INTENTIONAL OVERDOSE [None]
  - PALPITATIONS [None]
  - THERAPEUTIC RESPONSE UNEXPECTED [None]
  - TREMOR [None]
  - WITHDRAWAL SYNDROME [None]
